FAERS Safety Report 6698280-5 (Version None)
Quarter: 2010Q2

REPORT INFORMATION
  Report Type: 
  Country: None (occurrence: None)
  Receive Date: 20100426
  Receipt Date: 20100426
  Transmission Date: 20101027
  Serious: Yes (Other)
  Sender: FDA-Public Use
  Company Number: None

PATIENT
  Sex: Female
  Weight: 47.8 kg

DRUGS (17)
  1. LAMOTRIGINE [Suspect]
     Indication: BIPOLAR DISORDER
     Dosage: 100 MG BID PO
     Route: 048
  2. LIOTHYRONINE -CYTOMEL [Concomitant]
  3. LEXAPRO [Concomitant]
  4. GLUCOPHAGE [Concomitant]
  5. LAMICTAL [Concomitant]
  6. NIACIN -NIACOR [Concomitant]
  7. CARDURA [Concomitant]
  8. DILTIAZEM HCL -CARDOZEM LA [Concomitant]
  9. COZAAR [Concomitant]
  10. CONJUGATED ESTROGENS -PREMARIN [Concomitant]
  11. PRILOSEC [Concomitant]
  12. VITAMIN C-VITAMIN E -CRANBERRY CONCENTRATE [Concomitant]
  13. GLUCOSAMINE-CHONDROITIN [Concomitant]
  14. RANITIDINE HCL -ZANTAC [Concomitant]
  15. SLO-NIACIN TABLET SA [Concomitant]
  16. ASPIRIN LOW STRENGTH TABLET DR [Concomitant]
  17. CALTRATE [Concomitant]

REACTIONS (7)
  - CONDITION AGGRAVATED [None]
  - DEPRESSION [None]
  - MOVEMENT DISORDER [None]
  - PRODUCT SUBSTITUTION ISSUE [None]
  - TIC [None]
  - TREMOR [None]
  - VISION BLURRED [None]
